FAERS Safety Report 19452142 (Version 1)
Quarter: 2021Q2

REPORT INFORMATION
  Report Type: Report from Study
  Country: KR (occurrence: KR)
  Receive Date: 20210623
  Receipt Date: 20210623
  Transmission Date: 20210717
  Serious: Yes (Hospitalization)
  Sender: FDA-Public Use
  Company Number: KR-CELLTRION INC.-2018KR022940

PATIENT

DRUGS (8)
  1. TRUXIMA [Suspect]
     Active Substance: RITUXIMAB-ABBS
     Dosage: UNK
     Route: 042
  2. TRUXIMA [Suspect]
     Active Substance: RITUXIMAB-ABBS
     Dosage: 716 MG, 4 WEEK(S)
     Route: 042
     Dates: start: 20180920, end: 20180920
  3. TRUXIMA [Suspect]
     Active Substance: RITUXIMAB-ABBS
     Dosage: UNK
     Route: 042
  4. GASTER                             /00082102/ [Concomitant]
     Indication: PROPHYLAXIS
     Dosage: 20 MG, BID
     Route: 042
     Dates: start: 20180928, end: 20180929
  5. TRUXIMA [Suspect]
     Active Substance: RITUXIMAB-ABBS
     Dosage: UNK
     Route: 042
  6. WINUF PERI [Concomitant]
     Active Substance: AMINO ACIDS\DEXTROSE\ELECTROLYTES NOS\SOYBEAN OIL\VITAMINS
     Indication: SUPPLEMENTATION THERAPY
     Dosage: 1085 ML, QD
     Route: 042
     Dates: start: 20180928, end: 20180930
  7. TRUXIMA [Suspect]
     Active Substance: RITUXIMAB-ABBS
     Indication: FOLLICULAR LYMPHOMA
     Dosage: 716 MG, 4 WEEK(S)
     Route: 042
     Dates: start: 20180622, end: 20180622
  8. CHOP [Suspect]
     Active Substance: CYCLOPHOSPHAMIDE\DOXORUBICIN\PREDNISONE\VINCRISTINE
     Indication: FOLLICULAR LYMPHOMA
     Dosage: UNK
     Route: 042
     Dates: start: 20180622, end: 20180622

REACTIONS (1)
  - Colitis [Recovered/Resolved]

NARRATIVE: CASE EVENT DATE: 20180927
